FAERS Safety Report 17412586 (Version 1)
Quarter: 2020Q1

REPORT INFORMATION
  Report Type: Spontaneous
  Country: US (occurrence: US)
  Receive Date: 20200212
  Receipt Date: 20200212
  Transmission Date: 20200409
  Serious: Yes (Hospitalization)
  Sender: FDA-Public Use
  Company Number: None

PATIENT
  Age: 32 Year
  Sex: Female
  Weight: 57 kg

DRUGS (1)
  1. QUETIAPINE. [Suspect]
     Active Substance: QUETIAPINE
     Indication: INSOMNIA
     Route: 048

REACTIONS (6)
  - Headache [None]
  - Periorbital cellulitis [None]
  - Malaise [None]
  - Neutropenia [None]
  - Asthenia [None]
  - Agranulocytosis [None]

NARRATIVE: CASE EVENT DATE: 20200118
